FAERS Safety Report 5970865-0 (Version None)
Quarter: 2008Q4

REPORT INFORMATION
  Report Type: 
  Country: None (occurrence: None)
  Receive Date: 20081128
  Receipt Date: 20081112
  Transmission Date: 20090506
  Serious: Yes (Other)
  Sender: FDA-Public Use
  Company Number: PHHY2008JP28749

PATIENT
  Age: 71 Year
  Sex: Male

DRUGS (6)
  1. NEORAL [Suspect]
     Indication: APLASTIC ANAEMIA
     Dosage: 300 MG/DAY
     Route: 048
     Dates: start: 20080905, end: 20080921
  2. NEORAL [Interacting]
     Dosage: 75 MG/DAY
     Route: 048
     Dates: start: 20080922, end: 20080922
  3. TEICOPLANIN [Interacting]
     Indication: STAPHYLOCOCCAL SEPSIS
  4. EXJADE [Concomitant]
     Dosage: 500 MG/DAY
     Route: 048
  5. BLOOD TRANSFUSION, AUXILIARY PRODUCTS [Concomitant]
  6. ANTI-THYMOCYTE GLOBULIN NOS [Concomitant]

REACTIONS (6)
  - BLOOD CREATININE INCREASED [None]
  - BLOOD UREA INCREASED [None]
  - DRUG INTERACTION [None]
  - IMMUNOSUPPRESSANT DRUG LEVEL INCREASED [None]
  - RENAL DISORDER [None]
  - STAPHYLOCOCCAL SEPSIS [None]
